FAERS Safety Report 19083671 (Version 1)
Quarter: 2021Q2

REPORT INFORMATION
  Report Type: Spontaneous
  Country: CN (occurrence: CN)
  Receive Date: 20210401
  Receipt Date: 20210401
  Transmission Date: 20210717
  Serious: Yes (Other)
  Sender: FDA-Public Use
  Company Number: CN-TEVA-2021-CN-1898544

PATIENT
  Age: 83 Year
  Sex: Female

DRUGS (2)
  1. CLARITHROMYCIN. [Suspect]
     Active Substance: CLARITHROMYCIN
     Indication: SQUAMOUS CELL CARCINOMA
     Dosage: 500 MILLIGRAM DAILY;
     Route: 048
  2. ACITRETIN UNK [Suspect]
     Active Substance: ACITRETIN
     Indication: SQUAMOUS CELL CARCINOMA
     Dosage: 30 MILLIGRAM DAILY;
     Route: 048

REACTIONS (5)
  - Idiopathic intracranial hypertension [Recovered/Resolved]
  - Drug effective for unapproved indication [Unknown]
  - Off label use [Unknown]
  - Dry skin [Recovered/Resolved]
  - Lip dry [Recovered/Resolved]
